FAERS Safety Report 6253184-7 (Version None)
Quarter: 2009Q3

REPORT INFORMATION
  Report Type: 
  Country: None (occurrence: None)
  Receive Date: 20090701
  Receipt Date: 20090625
  Transmission Date: 20100115
  Serious: Yes (Hospitalization)
  Sender: FDA-Public Use
  Company Number: FR-MERCK-0906FRA00114

PATIENT
  Age: 68 Year
  Sex: Male

DRUGS (2)
  1. NOROXIN [Suspect]
     Route: 048
     Dates: start: 20081120, end: 20081215
  2. SULFAMETHOXAZOLE AND TRIMETHOPRIM [Suspect]
     Route: 048
     Dates: start: 20081120, end: 20081215

REACTIONS (2)
  - PYREXIA [None]
  - TOXIC SKIN ERUPTION [None]
